FAERS Safety Report 12551506 (Version 1)
Quarter: 2016Q3

REPORT INFORMATION
  Report Type: Spontaneous
  Country: US (occurrence: US)
  Receive Date: 20160713
  Receipt Date: 20160713
  Transmission Date: 20161109
  Serious: Yes (Death, Other)
  Sender: FDA-Public Use
  Company Number: US-CIPLA LTD.-2016US09227

PATIENT

DRUGS (3)
  1. OXALIPLATIN. [Suspect]
     Active Substance: OXALIPLATIN
     Indication: OESOPHAGEAL ADENOCARCINOMA
     Dosage: 130 MG/M2, ON DAY 1 FOR 21 DAYS
     Route: 042
  2. EPIRUBICIN [Suspect]
     Active Substance: EPIRUBICIN
     Indication: OESOPHAGEAL ADENOCARCINOMA
     Dosage: 50 MG/M2, ON DAY 1 FOR 21 DAYS
     Route: 042
  3. FLUOROURACIL. [Suspect]
     Active Substance: FLUOROURACIL
     Indication: OESOPHAGEAL ADENOCARCINOMA
     Dosage: 200 MG/M2/D AS A CONTINUOUS INTRAVENOUS INFUSION FOR 21 DAYS
     Route: 042

REACTIONS (3)
  - Acute respiratory distress syndrome [Unknown]
  - Gastrointestinal haemorrhage [Fatal]
  - Acute respiratory failure [Unknown]
